FAERS Safety Report 14709032 (Version 2)
Quarter: 2018Q2

REPORT INFORMATION
  Report Type: Spontaneous
  Country: ES (occurrence: ES)
  Receive Date: 20180403
  Receipt Date: 20180405
  Transmission Date: 20180711
  Serious: Yes (Death, Hospitalization, Other)
  Sender: FDA-Public Use
  Company Number: ES-JNJFOC-20180341444

PATIENT
  Age: 76 Year
  Sex: Male

DRUGS (7)
  1. FENTANYL. [Suspect]
     Active Substance: FENTANYL
     Indication: BACK PAIN
     Route: 062
     Dates: start: 20170609, end: 20170620
  2. PANTOPRAZOLE [Concomitant]
     Active Substance: PANTOPRAZOLE
     Route: 048
  3. TRAZODONE [Concomitant]
     Active Substance: TRAZODONE HYDROCHLORIDE
     Route: 048
     Dates: start: 20170428, end: 20170620
  4. QUETIAPINE. [Concomitant]
     Active Substance: QUETIAPINE
     Route: 048
     Dates: start: 20170428
  5. FENTANYL. [Suspect]
     Active Substance: FENTANYL
     Indication: BACK PAIN
     Route: 062
     Dates: start: 20170606
  6. ALDACTONE [Concomitant]
     Active Substance: SPIRONOLACTONE
     Route: 048
     Dates: start: 20170428
  7. AMIODARONE [Concomitant]
     Active Substance: AMIODARONE
     Route: 048
     Dates: start: 20170428

REACTIONS (2)
  - Delirium [Unknown]
  - Depressed level of consciousness [Unknown]

NARRATIVE: CASE EVENT DATE: 20170619
